FAERS Safety Report 8960898 (Version 1)
Quarter: 2012Q4

REPORT INFORMATION
  Report Type: Spontaneous
  Country: US (occurrence: None)
  Receive Date: 20121211
  Receipt Date: 20121211
  Transmission Date: 20130627
  Serious: Yes (Other)
  Sender: FDA-Public Use
  Company Number: None

PATIENT
  Age: 57 Year
  Sex: Female
  Weight: 114.31 kg

DRUGS (1)
  1. NOVOLOG FLEXPEN [Suspect]
     Dosage: 12 units w/meals injection
     Dates: start: 20121126, end: 20121203

REACTIONS (2)
  - Drug ineffective [None]
  - Blood glucose increased [None]
